FAERS Safety Report 9292968 (Version 1)
Quarter: 2013Q2

REPORT INFORMATION
  Report Type: Spontaneous
  Country: FR (occurrence: FR)
  Receive Date: 20130516
  Receipt Date: 20130516
  Transmission Date: 20140414
  Serious: Yes (Death)
  Sender: FDA-Public Use
  Company Number: FR-PFIZER INC-2013150880

PATIENT
  Age: 46 Year
  Sex: Male

DRUGS (2)
  1. ATROPINE SULFATE [Suspect]
     Indication: VENTRICULAR FIBRILLATION
     Dosage: 2 MG, UNK
  2. ADRENALINE [Concomitant]
     Route: 042

REACTIONS (1)
  - Toxicity to various agents [Fatal]
